FAERS Safety Report 5266072-X (Version None)
Quarter: 2007Q1

REPORT INFORMATION
  Report Type: 
  Country: None (occurrence: None)
  Receive Date: 20070315
  Receipt Date: 20070312
  Transmission Date: 20070707
  Serious: Yes (Hospitalization, Other)
  Sender: FDA-Public Use
  Company Number: FR-BRISTOL-MYERS SQUIBB COMPANY-13683099

PATIENT
  Age: 74 Year
  Sex: Male

DRUGS (1)
  1. SPRYCEL [Suspect]
     Indication: CHRONIC MYELOID LEUKAEMIA
     Route: 048
     Dates: start: 20070123, end: 20070203

REACTIONS (4)
  - DEHYDRATION [None]
  - DIARRHOEA [None]
  - RENAL FAILURE [None]
  - VOMITING [None]
